FAERS Safety Report 7039950-9 (Version None)
Quarter: 2010Q4

REPORT INFORMATION
  Report Type: 
  Country: None (occurrence: None)
  Receive Date: 20101012
  Receipt Date: 20100930
  Transmission Date: 20110411
  Serious: Yes (Other)
  Sender: FDA-Public Use
  Company Number: ES-ELI_LILLY_AND_COMPANY-ES201010000941

PATIENT
  Sex: Female

DRUGS (10)
  1. FORTEO [Suspect]
     Indication: OSTEOPOROSIS
     Dosage: 20 UG, DAILY (1/D)
     Route: 058
     Dates: start: 20100520, end: 20100915
  2. EUTIROX [Concomitant]
     Indication: HYPOTHYROIDISM
     Dosage: 50 MG, DAILY (1/D)
     Route: 048
  3. ASPIRIN [Concomitant]
     Indication: ANTICOAGULANT THERAPY
     Dosage: 100 MG, DAILY (1/D)
     Route: 048
  4. EFFERALGAN /00020001/ [Concomitant]
     Indication: PAIN
     Dosage: 1 D/F, DAILY (1/D)
     Route: 048
  5. ESTILSONA [Concomitant]
     Indication: INSOMNIA
     Dosage: 10 MG, DAILY (1/D)
     Route: 048
  6. LORAZEPAM [Concomitant]
     Indication: INSOMNIA
     Dosage: 1 MG, DAILY (1/D)
     Route: 048
  7. AREMIS [Concomitant]
     Indication: DEPRESSION
     Dosage: UNK, DAILY (1/D)
     Route: 048
  8. FUROSEMIDE [Concomitant]
     Indication: CARDIAC FAILURE
     Dosage: 40 MG, ONE OR TWO A DAY
     Route: 048
  9. PANTOPRAZOLE SODIUM [Concomitant]
     Indication: PROPHYLAXIS
     Dosage: UNK, DAILY (1/D)
     Route: 048
  10. PLANTAGO AFRA [Concomitant]
     Indication: CONSTIPATION
     Dosage: UNK, DAILY (1/D)
     Route: 048

REACTIONS (3)
  - DECREASED APPETITE [None]
  - DIZZINESS [None]
  - JAUNDICE CHOLESTATIC [None]
